FAERS Safety Report 8949922 (Version 1)
Quarter: 2012Q4

REPORT INFORMATION
  Report Type: 
  Country: DE (occurrence: DE)
  Receive Date: 20121205
  Receipt Date: 20121205
  Transmission Date: 20130627
  Serious: Yes (Death, Life-Threatening)
  Sender: FDA-Public Use
  Company Number: DE-MERCK-1211DEU012317

PATIENT
  Age: 55 Year
  Sex: Female
  Weight: 61 kg

DRUGS (6)
  1. TEMODAL [Suspect]
     Indication: GLIOBLASTOMA
     Dosage: 75 mg/m2, qd
     Dates: start: 20120816, end: 20120904
  2. L-THYROXIN [Concomitant]
     Indication: HYPOTHYROIDISM
     Dosage: 75 Microgram, qd
     Route: 048
  3. LASIX (FUROSEMIDE SODIUM) [Concomitant]
     Indication: HYPERTENSION
     Dosage: 40 mg, qd
     Route: 048
  4. BISOPROLOL [Concomitant]
     Indication: HYPERTENSION
     Dosage: 5 mg, qd
     Route: 048
  5. FORTECORTIN [Concomitant]
     Indication: CEREBRAL DISORDER
     Dosage: 2 mg, qd
     Route: 048
  6. COTRIM FORTE [Concomitant]
     Indication: ANTIFUNGAL PROPHYLAXIS
     Dosage: UNK

REACTIONS (5)
  - Arrhythmia [Fatal]
  - Sepsis [Fatal]
  - Leukopenia [Not Recovered/Not Resolved]
  - Thrombocytopenia [Not Recovered/Not Resolved]
  - C-reactive protein increased [Not Recovered/Not Resolved]
